FAERS Safety Report 5663858-4 (Version None)
Quarter: 2008Q1

REPORT INFORMATION
  Report Type: 
  Country: None (occurrence: None)
  Receive Date: 20080311
  Receipt Date: 20080228
  Transmission Date: 20080703
  Serious: Yes (Other)
  Sender: FDA-Public Use
  Company Number: 2008JP001049

PATIENT
  Sex: Male

DRUGS (1)
  1. VESICARE [Suspect]
     Dosage: ORAL
     Route: 048
     Dates: end: 20080228

REACTIONS (1)
  - HYPERKALAEMIA [None]
